FAERS Safety Report 8044319-4 (Version None)
Quarter: 2011Q4

REPORT INFORMATION
  Report Type: 
  Country: None (occurrence: None)
  Receive Date: 20111202
  Receipt Date: 20101220
  Transmission Date: 20120403
  Serious: Yes (Hospitalization)
  Sender: FDA-Public Use
  Company Number: 2010SP065540

PATIENT
  Age: 44 Year
  Sex: Female
  Weight: 83.9154 kg

DRUGS (1)
  1. NUVARING [Suspect]
     Indication: CONTRACEPTION
     Dates: start: 20070905, end: 20091201

REACTIONS (6)
  - PULMONARY EMBOLISM [None]
  - JOINT INJURY [None]
  - BRONCHITIS [None]
  - DEEP VEIN THROMBOSIS [None]
  - CYSTOSCOPY [None]
  - UPPER RESPIRATORY TRACT INFECTION [None]
